FAERS Safety Report 17559426 (Version 2)
Quarter: 2020Q1

REPORT INFORMATION
  Report Type: Spontaneous
  Country: JP (occurrence: JP)
  Receive Date: 20200319
  Receipt Date: 20200325
  Transmission Date: 20200409
  Serious: No
  Sender: FDA-Public Use
  Company Number: JP-GLAXOSMITHKLINE-JP2020JPN042882

PATIENT
  Age: 37 Year
  Sex: Female

DRUGS (2)
  1. MIGSIS [Suspect]
     Active Substance: LOMERIZINE HYDROCHLORIDE
     Dosage: UNK
     Route: 048
     Dates: start: 20200306, end: 20200306
  2. AMERGE [Suspect]
     Active Substance: NARATRIPTAN HYDROCHLORIDE
     Dosage: UNK
     Route: 048
     Dates: start: 20200306, end: 20200306

REACTIONS (3)
  - Sensation of foreign body [Recovering/Resolving]
  - Malaise [Recovering/Resolving]
  - Drug hypersensitivity [Unknown]

NARRATIVE: CASE EVENT DATE: 20200306
